FAERS Safety Report 17930390 (Version 1)
Quarter: 2020Q2

REPORT INFORMATION
  Report Type: Spontaneous
  Country: US (occurrence: US)
  Receive Date: 20200623
  Receipt Date: 20200623
  Transmission Date: 20200714
  Serious: Yes (Hospitalization)
  Sender: FDA-Public Use
  Company Number: US-JNJFOC-20200627524

PATIENT
  Age: 23 Year
  Sex: Male

DRUGS (1)
  1. SYMTUZA [Suspect]
     Active Substance: COBICISTAT\DARUNAVIR\EMTRICITABINE\TENOFOVIR ALAFENAMIDE
     Indication: HIV INFECTION
     Dosage: 800MG DARUNAVIR/150MG COBICISTAT/200MG EMTRICITABINE/10MG TENOFOVIR ALAFENAMIDE
     Route: 048
     Dates: start: 202002

REACTIONS (3)
  - Blood glucose increased [Unknown]
  - Viral load increased [Unknown]
  - CD4 lymphocytes decreased [Unknown]

NARRATIVE: CASE EVENT DATE: 202002
